FAERS Safety Report 15764676 (Version 1)
Quarter: 2018Q4

REPORT INFORMATION
  Report Type: Spontaneous
  Country: US (occurrence: US)
  Receive Date: 20181207
  Receipt Date: 20181207
  Transmission Date: 20190205
  Serious: No
  Sender: FDA-Public Use
  Company Number: None

PATIENT
  Age: 33 Year
  Sex: Male
  Weight: 72.57 kg

DRUGS (4)
  1. MINERAL HEALTH 1000MG CBD [Suspect]
     Active Substance: CANNABIDIOL\HERBALS
     Indication: STRESS
     Route: 048
  2. MINERAL HEALTH 1000MG CBD [Suspect]
     Active Substance: CANNABIDIOL\HERBALS
     Indication: SLEEP DISORDER
     Route: 048
  3. MINERAL HEALTH 1000MG CBD [Suspect]
     Active Substance: CANNABIDIOL\HERBALS
     Indication: SKIN DISORDER
     Route: 048
  4. MINERAL HEALTH 1000MG CBD [Suspect]
     Active Substance: CANNABIDIOL\HERBALS
     Indication: AFFECTIVE DISORDER
     Route: 048

REACTIONS (5)
  - Headache [None]
  - Vomiting [None]
  - Emotional distress [None]
  - Abdominal pain upper [None]
  - Restlessness [None]

NARRATIVE: CASE EVENT DATE: 20181001
